FAERS Safety Report 21739935 (Version 1)
Quarter: 2022Q4

REPORT INFORMATION
  Report Type: Spontaneous
  Country: MY (occurrence: MY)
  Receive Date: 20221216
  Receipt Date: 20221216
  Transmission Date: 20230112
  Serious: Yes (Other)
  Sender: FDA-Public Use
  Company Number: MY-002147023-NVSC2022MY289797

PATIENT
  Age: 20 Year
  Sex: Male

DRUGS (1)
  1. VOLTAREN [Suspect]
     Active Substance: DICLOFENAC SODIUM
     Indication: Myalgia
     Dosage: 100 MG, Q8H
     Route: 048

REACTIONS (1)
  - Anaphylactic shock [Recovering/Resolving]
